FAERS Safety Report 7106309-5 (Version None)
Quarter: 2010Q4

REPORT INFORMATION
  Report Type: 
  Country: None (occurrence: None)
  Receive Date: 20101116
  Receipt Date: 20101110
  Transmission Date: 20110411
  Serious: Yes (Other)
  Sender: FDA-Public Use
  Company Number: US-PFIZER INC-2003003880

PATIENT
  Sex: Female
  Weight: 86.18 kg

DRUGS (2)
  1. NEURONTIN [Suspect]
     Indication: PAIN
     Route: 048
  2. TRAMADOL HCL [Concomitant]
     Route: 065

REACTIONS (12)
  - ASTHENIA [None]
  - DIARRHOEA [None]
  - ERUCTATION [None]
  - GINGIVAL DISORDER [None]
  - INTENTIONAL OVERDOSE [None]
  - MALAISE [None]
  - NAUSEA [None]
  - PAIN [None]
  - PAIN IN JAW [None]
  - TOOTH ABSCESS [None]
  - TOOTHACHE [None]
  - VOMITING [None]
